FAERS Safety Report 23552964 (Version 1)
Quarter: 2024Q1

REPORT INFORMATION
  Report Type: Spontaneous
  Country: US (occurrence: None)
  Receive Date: 20240221
  Receipt Date: 20240221
  Transmission Date: 20240410
  Serious: No
  Sender: FDA-Public Use
  Company Number: None

PATIENT
  Age: 80 Year
  Sex: Female

DRUGS (1)
  1. JAKAFI [Suspect]
     Active Substance: RUXOLITINIB
     Dosage: 5 MG TWICE A DAY ORAL
     Route: 048
     Dates: start: 20210303

REACTIONS (1)
  - Pelvic fracture [None]

NARRATIVE: CASE EVENT DATE: 20240221
